FAERS Safety Report 17787490 (Version 7)
Quarter: 2020Q4

REPORT INFORMATION
  Report Type: Spontaneous
  Country: US (occurrence: US)
  Receive Date: 20200514
  Receipt Date: 20201113
  Transmission Date: 20210113
  Serious: Yes (Other)
  Sender: FDA-Public Use
  Company Number: US-SA-2020SA124578

PATIENT

DRUGS (2)
  1. DUPIXENT [Suspect]
     Active Substance: DUPILUMAB
     Indication: ECZEMA
     Dosage: 300 MG, QOW
     Route: 058
     Dates: start: 20200106, end: 2020
  2. DUPIXENT [Suspect]
     Active Substance: DUPILUMAB
     Indication: DERMATITIS ATOPIC
     Dosage: 300 MG, QOW
     Route: 058
     Dates: start: 2020, end: 20201028

REACTIONS (11)
  - Vertigo [Recovering/Resolving]
  - Skin lesion removal [Unknown]
  - Therapy cessation [Unknown]
  - Dizziness [Recovering/Resolving]
  - Injection site bruising [Recovering/Resolving]
  - Injection site swelling [Unknown]
  - Dental discomfort [Recovering/Resolving]
  - Therapeutic response decreased [Unknown]
  - Loss of consciousness [Unknown]
  - Fear of injection [Unknown]
  - Nausea [Unknown]

NARRATIVE: CASE EVENT DATE: 2020
